FAERS Safety Report 10290777 (Version 2)
Quarter: 2014Q3

REPORT INFORMATION
  Report Type: Spontaneous
  Country: GB (occurrence: GB)
  Receive Date: 20140710
  Receipt Date: 20140710
  Transmission Date: 20150326
  Serious: Yes (Disabling, Other)
  Sender: FDA-Public Use
  Company Number: GB-PFIZER INC-9608368

PATIENT
  Age: 29 Year
  Sex: Female

DRUGS (3)
  1. LUSTRAL [Suspect]
     Active Substance: SERTRALINE HYDROCHLORIDE
     Dosage: 100 MG, DAILY
     Route: 048
     Dates: start: 199512, end: 19951215
  2. DIANETTE [Concomitant]
     Active Substance: CYPROTERONE ACETATE\ETHINYL ESTRADIOL
     Indication: CONTRACEPTION
     Dosage: UNK,ONCE DAILY
     Route: 048
     Dates: start: 19950312
  3. LUSTRAL [Suspect]
     Active Substance: SERTRALINE HYDROCHLORIDE
     Indication: DEPRESSION
     Dosage: 50 MG, 1X/DAY
     Route: 048
     Dates: start: 19951113, end: 199512

REACTIONS (3)
  - Systemic lupus erythematosus rash [Recovered/Resolved with Sequelae]
  - Systemic lupus erythematosus [Recovered/Resolved with Sequelae]
  - Scar [Unknown]

NARRATIVE: CASE EVENT DATE: 199512
